FAERS Safety Report 20498754 (Version 1)
Quarter: 2022Q1

REPORT INFORMATION
  Report Type: Spontaneous
  Country: US (occurrence: US)
  Receive Date: 20220222
  Receipt Date: 20220222
  Transmission Date: 20220423
  Serious: Yes (Other)
  Sender: FDA-Public Use
  Company Number: US-SUN PHARMACEUTICAL INDUSTRIES LTD-2019R1-230437

PATIENT
  Age: 21 Year
  Sex: Male

DRUGS (10)
  1. FAMOTIDINE [Suspect]
     Active Substance: FAMOTIDINE
     Indication: Cannabinoid hyperemesis syndrome
     Dosage: UNK
     Route: 065
  2. LORAZEPAM [Suspect]
     Active Substance: LORAZEPAM
     Indication: Cannabinoid hyperemesis syndrome
     Dosage: UNK
     Route: 065
  3. MORPHINE [Suspect]
     Active Substance: MORPHINE
     Indication: Cannabinoid hyperemesis syndrome
     Dosage: UNK
     Route: 065
  4. ONDANSETRON [Suspect]
     Active Substance: ONDANSETRON
     Indication: Cannabinoid hyperemesis syndrome
     Dosage: UNK
     Route: 065
  5. PANTOPRAZOLE [Suspect]
     Active Substance: PANTOPRAZOLE
     Indication: Cannabinoid hyperemesis syndrome
     Dosage: UNK
     Route: 065
  6. DIAZEPAM [Suspect]
     Active Substance: DIAZEPAM
     Indication: Cannabinoid hyperemesis syndrome
     Dosage: UNK
     Route: 065
  7. HALOPERIDOL [Suspect]
     Active Substance: HALOPERIDOL
     Indication: Vomiting
     Dosage: 2 MILLIGRAM
     Route: 042
  8. METOCLOPRAMIDE [Suspect]
     Active Substance: METOCLOPRAMIDE
     Indication: Cannabinoid hyperemesis syndrome
     Dosage: UNK
     Route: 065
  9. HYOSCYAMINE [Suspect]
     Active Substance: HYOSCYAMINE
     Indication: Cannabinoid hyperemesis syndrome
     Dosage: UNK
     Route: 065
  10. PROCHLORPERAZINE [Suspect]
     Active Substance: PROCHLORPERAZINE
     Indication: Cannabinoid hyperemesis syndrome
     Dosage: UNK
     Route: 065

REACTIONS (2)
  - Drug ineffective [Unknown]
  - Off label use [Unknown]
